FAERS Safety Report 4551216-5 (Version None)
Quarter: 2005Q1

REPORT INFORMATION
  Report Type: 
  Country: None (occurrence: None)
  Receive Date: 20050110
  Receipt Date: 20041222
  Transmission Date: 20050727
  Serious: Yes (Other)
  Sender: FDA-Public Use
  Company Number: 52773

PATIENT
  Age: 60 Year
  Sex: Male
  Weight: 238.9 kg

DRUGS (2)
  1. 12 HOUR PSEUDOPHED, 120 MG, PERRIGO COMPANY [Suspect]
     Indication: NASOPHARYNGITIS
     Dosage: ONE DOSE
     Dates: start: 20040101, end: 20040101
  2. ASPIRIN [Concomitant]

REACTIONS (8)
  - ABDOMINAL PAIN UPPER [None]
  - ATHEROSCLEROSIS [None]
  - CARDIAC DISORDER [None]
  - CARDIAC ENZYMES INCREASED [None]
  - DYSPNOEA [None]
  - HYPERHIDROSIS [None]
  - HYPERTENSION [None]
  - HYPOAESTHESIA [None]
